FAERS Safety Report 23981124 (Version 1)
Quarter: 2024Q2

REPORT INFORMATION
  Report Type: Spontaneous
  Country: CN (occurrence: CN)
  Receive Date: 20240617
  Receipt Date: 20240617
  Transmission Date: 20240715
  Serious: Yes (Other)
  Sender: FDA-Public Use
  Company Number: CN-PFIZER INC-PV202400077410

PATIENT
  Age: 60 Year
  Sex: Female
  Weight: 60.5 kg

DRUGS (3)
  1. EPIRUBICIN [Suspect]
     Active Substance: EPIRUBICIN
     Indication: Invasive breast carcinoma
     Dosage: 135 MG, 1X/DAY
     Route: 041
     Dates: start: 20240605, end: 20240605
  2. CYCLOPHOSPHAMIDE [Suspect]
     Active Substance: CYCLOPHOSPHAMIDE
     Indication: Invasive breast carcinoma
     Dosage: 0.8 G, 1X/DAY
     Route: 041
     Dates: start: 20240605, end: 20240605
  3. SODIUM CHLORIDE [Concomitant]
     Active Substance: SODIUM CHLORIDE
     Indication: Invasive breast carcinoma
     Dosage: 100 ML, 1X/DAY
     Route: 041
     Dates: start: 20240605, end: 20240605

REACTIONS (3)
  - Vomiting [Recovering/Resolving]
  - Nausea [Recovering/Resolving]
  - Hepatic function abnormal [Recovering/Resolving]

NARRATIVE: CASE EVENT DATE: 20240605
